FAERS Safety Report 7054918-4 (Version None)
Quarter: 2010Q4

REPORT INFORMATION
  Report Type: 
  Country: None (occurrence: None)
  Receive Date: 20101021
  Receipt Date: 20101012
  Transmission Date: 20110411
  Serious: No
  Sender: FDA-Public Use
  Company Number: US-BIOGENIDEC-2010BI035961

PATIENT
  Age: 34 Year
  Sex: Female

DRUGS (1)
  1. TYSABRI [Suspect]
     Indication: MULTIPLE SCLEROSIS
     Route: 042
     Dates: start: 20100305

REACTIONS (9)
  - COUGH [None]
  - DEVICE MATERIAL ISSUE [None]
  - DIARRHOEA [None]
  - INCREASED UPPER AIRWAY SECRETION [None]
  - MIGRAINE [None]
  - NAUSEA [None]
  - PAIN [None]
  - PNEUMONIA [None]
  - VOMITING [None]
